FAERS Safety Report 7394415-X (Version None)
Quarter: 2011Q2

REPORT INFORMATION
  Report Type: 
  Country: None (occurrence: None)
  Receive Date: 20110405
  Receipt Date: 20110322
  Transmission Date: 20111010
  Serious: Yes (Other)
  Sender: FDA-Public Use
  Company Number: PHHY2011US23679

PATIENT
  Sex: Male

DRUGS (1)
  1. GENTEAL [Suspect]
     Indication: DRY EYE
     Dosage: 1 DRP, QD

REACTIONS (2)
  - VISION BLURRED [None]
  - CATARACT [None]
